FAERS Safety Report 21405807 (Version 2)
Quarter: 2023Q1

REPORT INFORMATION
  Report Type: Report from Study
  Country: CA (occurrence: CA)
  Receive Date: 20221004
  Receipt Date: 20230306
  Transmission Date: 20230418
  Serious: Yes (Other)
  Sender: FDA-Public Use
  Company Number: CA-JNJFOC-20220501802

PATIENT
  Age: 12 Year
  Sex: Female
  Weight: 117 kg

DRUGS (3)
  1. REMICADE [Suspect]
     Active Substance: INFLIXIMAB
     Indication: Uveitis
     Dosage: THERAPY START DATE ALSO REPORTED AS 19-FEB-2010. EXPIRY DATE: -JUL-2025
     Route: 041
     Dates: start: 20100218, end: 20230302
  2. REMICADE [Suspect]
     Active Substance: INFLIXIMAB
     Indication: Antinuclear antibody
  3. REMICADE [Suspect]
     Active Substance: INFLIXIMAB
     Indication: Juvenile idiopathic arthritis

REACTIONS (10)
  - Gastric bypass [Unknown]
  - Infusion site extravasation [Recovering/Resolving]
  - Infusion site swelling [Recovered/Resolved]
  - Infusion site pain [Recovered/Resolved]
  - Infusion related reaction [Unknown]
  - Skin warm [Unknown]
  - Peripheral swelling [Unknown]
  - Joint range of motion decreased [Unknown]
  - Arthralgia [Unknown]
  - Off label use [Unknown]

NARRATIVE: CASE EVENT DATE: 20100218
